FAERS Safety Report 5774873-4 (Version None)
Quarter: 2008Q2

REPORT INFORMATION
  Report Type: 
  Country: None (occurrence: None)
  Receive Date: 20080617
  Receipt Date: 20080604
  Transmission Date: 20081010
  Serious: Yes (Death, Other)
  Sender: FDA-Public Use
  Company Number: PL-ELI_LILLY_AND_COMPANY-PL200806001067

PATIENT
  Sex: Female
  Weight: 47 kg

DRUGS (6)
  1. XIGRIS [Suspect]
     Indication: SEPTIC SHOCK
     Dosage: 108.3 MG, UNK
     Route: 042
     Dates: start: 20080529, end: 20080602
  2. LEVONOR [Concomitant]
     Indication: SHOCK
     Dosage: UNK, UNKNOWN
     Route: 042
  3. ADRENALINA [Concomitant]
     Indication: SHOCK
     Dosage: UNK, UNKNOWN
     Route: 042
  4. DOBUTAMINE HCL [Concomitant]
     Indication: SHOCK
     Dosage: UNK, UNKNOWN
     Route: 042
  5. FRAGMIN [Concomitant]
     Indication: SHOCK
     Dosage: UNK, UNKNOWN
     Route: 065
  6. SULPERAZON [Concomitant]
     Indication: SHOCK
     Dosage: UNK, UNKNOWN
     Route: 065

REACTIONS (2)
  - SEPTIC SHOCK [None]
  - SUBARACHNOID HAEMORRHAGE [None]
